FAERS Safety Report 17204376 (Version 5)
Quarter: 2020Q3

REPORT INFORMATION
  Report Type: Report from Study
  Country: US (occurrence: US)
  Receive Date: 20191226
  Receipt Date: 20200707
  Transmission Date: 20201102
  Serious: Yes (Hospitalization)
  Sender: FDA-Public Use
  Company Number: US-ACTELION-A-US2019-194295

PATIENT
  Age: 60 Year
  Sex: Female

DRUGS (11)
  1. OPSUMIT [Suspect]
     Active Substance: MACITENTAN
     Indication: PULMONARY ARTERIAL HYPERTENSION
  2. LIPITOR [Concomitant]
     Active Substance: ATORVASTATIN CALCIUM
  3. SINGULAIR [Concomitant]
     Active Substance: MONTELUKAST SODIUM
  4. TEMAZEPAM. [Concomitant]
     Active Substance: TEMAZEPAM
  5. AVAPRO [Concomitant]
     Active Substance: IRBESARTAN
  6. CLONAZEPAM. [Concomitant]
     Active Substance: CLONAZEPAM
  7. COREG [Concomitant]
     Active Substance: CARVEDILOL
  8. TRAZODONE [Concomitant]
     Active Substance: TRAZODONE HYDROCHLORIDE
  9. OPSUMIT [Suspect]
     Active Substance: MACITENTAN
     Indication: PLASMA CELL MYELOMA
     Dosage: 10 MG, QD
     Route: 048
     Dates: start: 20190610
  10. PAXIL [Concomitant]
     Active Substance: PAROXETINE HYDROCHLORIDE
  11. PLAVIX [Concomitant]
     Active Substance: CLOPIDOGREL BISULFATE

REACTIONS (6)
  - Pneumonia [Recovered/Resolved]
  - Swelling face [Unknown]
  - Peripheral swelling [Unknown]
  - Dyspnoea [Unknown]
  - Diverticulitis [Recovered/Resolved]
  - Back pain [Not Recovered/Not Resolved]

NARRATIVE: CASE EVENT DATE: 20191230
